FAERS Safety Report 6594221-X (Version None)
Quarter: 2010Q1

REPORT INFORMATION
  Report Type: 
  Country: None (occurrence: None)
  Receive Date: 20100218
  Receipt Date: 20100218
  Transmission Date: 20100710
  Serious: Yes (Other)
  Sender: FDA-Public Use
  Company Number: None

PATIENT
  Sex: Female
  Weight: 65.318 kg

DRUGS (1)
  1. WARFARIN SODIUM [Suspect]
     Indication: ANTITHROMBIN III
     Dosage: ONE TAB AS DIRECTED ORAL
     Route: 048
     Dates: start: 20050101

REACTIONS (2)
  - INTERNATIONAL NORMALISED RATIO FLUCTUATION [None]
  - TREATMENT FAILURE [None]
